FAERS Safety Report 8693477 (Version 7)
Quarter: 2014Q2

REPORT INFORMATION
  Report Type: Spontaneous
  Country: BR (occurrence: BR)
  Receive Date: 20120730
  Receipt Date: 20140415
  Transmission Date: 20141212
  Serious: Yes (Life-Threatening, Hospitalization, Other)
  Sender: FDA-Public Use
  Company Number: BR-ROCHE-1094252

PATIENT
  Age: 53 Year
  Sex: Female
  Weight: 46 kg

DRUGS (4)
  1. XOLAIR [Suspect]
     Indication: ASTHMA
     Dosage: 2 DF, 2 AMPOULES A MONTH
     Route: 065
     Dates: end: 201305
  2. AMIODARONE [Concomitant]
  3. MONTELUKAST SODIUM [Concomitant]
     Dosage: DRUG NAME REPORTED AS MONTELAIR AND SINGULAIR
     Route: 065
  4. SERETIDE DISKUS [Concomitant]
     Dosage: 50/250 MG
     Route: 065

REACTIONS (6)
  - Cardio-respiratory arrest [Recovering/Resolving]
  - Arrhythmia [Recovering/Resolving]
  - Pneumonia [Recovering/Resolving]
  - Asthma [Recovering/Resolving]
  - Asthma [Recovering/Resolving]
  - Malaise [Recovering/Resolving]
